FAERS Safety Report 23240429 (Version 1)
Quarter: 2023Q4

REPORT INFORMATION
  Report Type: Spontaneous
  Country: FR (occurrence: FR)
  Receive Date: 20231129
  Receipt Date: 20231129
  Transmission Date: 20240110
  Serious: Yes (Life-Threatening, Hospitalization, Other)
  Sender: FDA-Public Use
  Company Number: FR-009507513-2311FRA008298

PATIENT
  Age: 53 Year
  Sex: Male

DRUGS (1)
  1. PEMBROLIZUMAB [Suspect]
     Active Substance: PEMBROLIZUMAB
     Indication: Hodgkin^s disease
     Dosage: 200 MILLIGRAM, Q3W

REACTIONS (7)
  - Autoimmune hypothyroidism [Recovered/Resolved]
  - Rhabdomyolysis [Recovered/Resolved]
  - Acute kidney injury [Recovered/Resolved]
  - Drug clearance decreased [Unknown]
  - Drug half-life increased [Unknown]
  - Overdose [Unknown]
  - Product use in unapproved indication [Unknown]
